FAERS Safety Report 7884752-4 (Version None)
Quarter: 2011Q4

REPORT INFORMATION
  Report Type: 
  Country: None (occurrence: None)
  Receive Date: 20111102
  Receipt Date: 20111027
  Transmission Date: 20120403
  Serious: Yes (Disabling)
  Sender: FDA-Public Use
  Company Number: DE-ABBOTT-11P-062-0869719-00

PATIENT
  Sex: Female

DRUGS (2)
  1. HUMIRA [Suspect]
     Indication: CROHN'S DISEASE
     Route: 058
     Dates: start: 20100409, end: 20100923
  2. INSULIN [Concomitant]
     Indication: DIABETES MELLITUS

REACTIONS (1)
  - DIABETES COMPLICATING PREGNANCY [None]
